FAERS Safety Report 17336785 (Version 1)
Quarter: 2020Q1

REPORT INFORMATION
  Report Type: Spontaneous
  Country: US (occurrence: US)
  Receive Date: 20200128
  Receipt Date: 20200128
  Transmission Date: 20200409
  Serious: No
  Sender: FDA-Public Use
  Company Number: US-009507513-2001USA009574

PATIENT
  Age: 79 Year
  Sex: Male

DRUGS (3)
  1. FLOMAX [Concomitant]
     Active Substance: TAMSULOSIN HYDROCHLORIDE
     Dosage: UNK
  2. LASIX [Concomitant]
     Active Substance: FUROSEMIDE
     Dosage: UNK
  3. KEYTRUDA [Suspect]
     Active Substance: PEMBROLIZUMAB
     Indication: SMALL CELL LUNG CANCER
     Dosage: 200 MG EVERY 3 WEEKS
     Route: 042
     Dates: start: 201909

REACTIONS (3)
  - Adverse event [Not Recovered/Not Resolved]
  - Peripheral swelling [Not Recovered/Not Resolved]
  - Pain [Not Recovered/Not Resolved]
